FAERS Safety Report 19835494 (Version 1)
Quarter: 2021Q3

REPORT INFORMATION
  Report Type: Report from Study
  Country: US (occurrence: US)
  Receive Date: 20210914
  Receipt Date: 20210914
  Transmission Date: 20211014
  Serious: Yes (Congenital Anomaly)
  Sender: FDA-Public Use
  Company Number: US-GILEAD-2021-0547906

PATIENT

DRUGS (1)
  1. REMDESIVIR. [Suspect]
     Active Substance: REMDESIVIR
     Indication: COVID-19
     Dosage: 100 MG
     Route: 064
     Dates: start: 20210502, end: 20210506

REACTIONS (2)
  - Foetal exposure during pregnancy [Recovered/Resolved]
  - Foetal macrosomia [Unknown]

NARRATIVE: CASE EVENT DATE: 20210502
